FAERS Safety Report 23627000 (Version 1)
Quarter: 2024Q1

REPORT INFORMATION
  Report Type: Report from Study
  Country: GB (occurrence: GB)
  Receive Date: 20240313
  Receipt Date: 20240313
  Transmission Date: 20240409
  Serious: No
  Sender: FDA-Public Use
  Company Number: GB-SPRINGWORKS THERAPEUTICS-SW-001140

PATIENT
  Age: 31 Year

DRUGS (2)
  1. NIROGACESTAT [Suspect]
     Active Substance: NIROGACESTAT
     Indication: Product used for unknown indication
     Dosage: 150 MILLIGRAM, BID
  2. NIROGACESTAT [Suspect]
     Active Substance: NIROGACESTAT
     Dosage: 50 MILLIGRAM, BID

REACTIONS (2)
  - Diarrhoea [Unknown]
  - Skin toxicity [Unknown]
